FAERS Safety Report 5814820-X (Version None)
Quarter: 2008Q3

REPORT INFORMATION
  Report Type: 
  Country: None (occurrence: None)
  Receive Date: 20080718
  Receipt Date: 20080711
  Transmission Date: 20090109
  Serious: Yes (Other)
  Sender: FDA-Public Use
  Company Number: US-BAYER-200713649BCC

PATIENT
  Age: 49 Year
  Sex: Male
  Weight: 84 kg

DRUGS (9)
  1. ALKA SELTZER PLUS EFFERVESCENT CHERRY FLAVOR TABLETS [Suspect]
     Indication: NASOPHARYNGITIS
     Route: 048
  2. LISINOPRIL [Concomitant]
  3. ZANTAC [Concomitant]
  4. SIMVASTATIN [Concomitant]
  5. HYDROCHLORATHIAZIDE [Concomitant]
  6. AMLODIPINE [Concomitant]
  7. SOMA [Concomitant]
  8. ZANAFLEX [Concomitant]
  9. ADVIL [Concomitant]

REACTIONS (3)
  - DIZZINESS [None]
  - GAIT DISTURBANCE [None]
  - NERVOUS SYSTEM DISORDER [None]
